FAERS Safety Report 12843227 (Version 1)
Quarter: 2016Q4

REPORT INFORMATION
  Report Type: Spontaneous
  Country: VE (occurrence: VE)
  Receive Date: 20161013
  Receipt Date: 20161013
  Transmission Date: 20170207
  Serious: Yes (Other)
  Sender: FDA-Public Use
  Company Number: VE-GLAXOSMITHKLINE-VE2016GSK148057

PATIENT
  Sex: Female
  Weight: 65 kg

DRUGS (2)
  1. SALBUTAN [Suspect]
     Active Substance: ALBUTEROL SULFATE
     Indication: ASTHMA
  2. IPRATROPIUM BROMIDE. [Concomitant]
     Active Substance: IPRATROPIUM BROMIDE

REACTIONS (4)
  - Suffocation feeling [Unknown]
  - Asthmatic crisis [Unknown]
  - Intentional product misuse [Unknown]
  - Product availability issue [Unknown]
